FAERS Safety Report 8231728-3 (Version None)
Quarter: 2012Q1

REPORT INFORMATION
  Report Type: 
  Country: None (occurrence: None)
  Receive Date: 20120323
  Receipt Date: 20120322
  Transmission Date: 20120608
  Serious: Yes (Other)
  Sender: FDA-Public Use
  Company Number: JP-ROCHE-1037936

PATIENT
  Sex: Female
  Weight: 65 kg

DRUGS (5)
  1. RHEUMATREX [Concomitant]
     Indication: RHEUMATOID ARTHRITIS
     Dosage: AMOUNT 2
     Route: 048
     Dates: start: 20110121, end: 20110512
  2. RHEUMATREX [Concomitant]
     Route: 048
     Dates: start: 20110513
  3. ACTEMRA [Suspect]
     Indication: RHEUMATOID ARTHRITIS
     Route: 041
     Dates: start: 20110920
  4. ETODOLAC [Concomitant]
     Indication: RHEUMATOID ARTHRITIS
     Route: 048
     Dates: start: 20100817
  5. FOLIC ACID [Concomitant]
     Route: 048
     Dates: start: 20110121

REACTIONS (1)
  - VERTIGO [None]
